FAERS Safety Report 8250110-6 (Version None)
Quarter: 2012Q1

REPORT INFORMATION
  Report Type: 
  Country: None (occurrence: None)
  Receive Date: 20120328
  Receipt Date: 20120312
  Transmission Date: 20120608
  Serious: Yes (Other)
  Sender: FDA-Public Use
  Company Number: FK201200746

PATIENT
  Age: 71 Year
  Sex: Female

DRUGS (12)
  1. CIPROFLOXACIN [Suspect]
     Indication: PRODUCT USED FOR UNKNOWN INDICATION
     Dosage: 750 MG, 2 IN 1 D, ORAL
     Route: 048
     Dates: start: 20120110, end: 20120211
  2. FERROUS SULPHATE (FERROUS SULFATE) (FERROUS SULFATE) [Concomitant]
  3. FUROSEMIDE [Concomitant]
  4. ASPIRIN [Concomitant]
  5. MAGNESIUM SULFATE [Suspect]
     Indication: PRODUCT USED FOR UNKNOWN INDICATION
     Dosage: INTRAVENOUS (NOT OTHERWISE SPECIFIED)
     Route: 042
     Dates: start: 20120113, end: 20120209
  6. BISOPROLOL FUMARATE [Concomitant]
  7. ATORVASTATIN (ATORVASTATIN) (ATORVASTATIN) [Concomitant]
  8. MAGNESIUM-L-ASPARTATE HYDROCHLORIDE (MAGNESIUM ASPARTATE HYDROCHLORIDE [Concomitant]
  9. PIPERACILLIN AND TAZOBACTAM [Suspect]
     Indication: PRODUCT USED FOR UNKNOWN INDICATION
     Dosage: INTRAVENOUS (NOT OTHERWISE SPECIFIED)
     Route: 042
     Dates: start: 20120221, end: 20120222
  10. LANSOPRAZOLE [Concomitant]
  11. TEICOPLANIN (TEICOPLANIN) (TEICOPLANIN) [Concomitant]
  12. NICORANDIL (NICORANDIL) (NICORANDIL) [Concomitant]

REACTIONS (4)
  - INFUSION RELATED REACTION [None]
  - RASH MACULO-PAPULAR [None]
  - PRURITUS [None]
  - PARAESTHESIA [None]
